FAERS Safety Report 24231235 (Version 5)
Quarter: 2024Q4

REPORT INFORMATION
  Report Type: Report from Study
  Country: US (occurrence: US)
  Receive Date: 20240821
  Receipt Date: 20241122
  Transmission Date: 20250115
  Serious: Yes (Hospitalization, Other)
  Sender: ACADIA PHARMACEUTICALS
  Company Number: US-ACADIA PHARMACEUTICALS INC.-ACA-2024-TRF-004075

PATIENT
  Age: 11 Year
  Sex: Female

DRUGS (20)
  1. DAYBUE [Suspect]
     Active Substance: TROFINETIDE
     Indication: Rett syndrome
     Dosage: 15 MILLILITER, BID
     Dates: start: 20231016
  2. CLONAZEPAM [Concomitant]
     Active Substance: CLONAZEPAM
     Dosage: 10 MILLILITER, QD
     Route: 065
  3. CHOLECALCIFEROL [Concomitant]
     Active Substance: CHOLECALCIFEROL
  4. METOCLOPRAMIDE [Concomitant]
     Active Substance: METOCLOPRAMIDE
  5. ACETAMINOPHEN [Concomitant]
     Active Substance: ACETAMINOPHEN
  6. DIAZEPAM [Concomitant]
     Active Substance: DIAZEPAM
  7. IBUPROFEN [Concomitant]
     Active Substance: IBUPROFEN
  8. GABAPENTIN [Concomitant]
     Active Substance: GABAPENTIN
  9. OXYCODONE [Concomitant]
     Active Substance: OXYCODONE
  10. POLYETHYLENE GLYCOL 3350 [Concomitant]
     Active Substance: POLYETHYLENE GLYCOL 3350
  11. GLYCOPYRROLATE [Concomitant]
     Active Substance: GLYCOPYRROLATE
  12. OMEPRAZOLE\SODIUM BICARBONATE [Concomitant]
     Active Substance: OMEPRAZOLE\SODIUM BICARBONATE
  13. RISPERIDONE [Concomitant]
     Active Substance: RISPERIDONE
  14. VALPROIC ACID [Concomitant]
     Active Substance: VALPROIC ACID
  15. LACOSAMIDE [Concomitant]
     Active Substance: LACOSAMIDE
  16. PRIMIDONE [Concomitant]
     Active Substance: PRIMIDONE
  17. TIZANIDINE [Concomitant]
     Active Substance: TIZANIDINE
  18. TROFINETIDE [Concomitant]
     Active Substance: TROFINETIDE
  19. ACETYLCYSTEINE [Concomitant]
     Active Substance: ACETYLCYSTEINE
  20. UNSPECIFIED INGREDIENT [Concomitant]
     Active Substance: UNSPECIFIED INGREDIENT

REACTIONS (8)
  - Neuromuscular scoliosis [Recovering/Resolving]
  - Spinal operation [Not Recovered/Not Resolved]
  - Pain [Recovered/Resolved]
  - Pulmonary oedema [Recovering/Resolving]
  - Pleural effusion [Recovering/Resolving]
  - Endotracheal intubation [Recovered/Resolved]
  - Diarrhoea [Not Recovered/Not Resolved]
  - Diarrhoea [Not Recovered/Not Resolved]

NARRATIVE: CASE EVENT DATE: 20241001
